FAERS Safety Report 5526562-9 (Version None)
Quarter: 2007Q4

REPORT INFORMATION
  Report Type: 
  Country: None (occurrence: None)
  Receive Date: 20071121
  Receipt Date: 20071121
  Transmission Date: 20080405
  Serious: Yes (Death)
  Sender: FDA-Public Use
  Company Number: None

PATIENT
  Age: 64 Year
  Sex: Male
  Weight: 74.8435 kg

DRUGS (1)
  1. ARAVA [Suspect]
     Indication: CONNECTIVE TISSUE DISORDER
     Dates: start: 20070301, end: 20070313

REACTIONS (3)
  - COMA [None]
  - INFLUENZA [None]
  - ORGAN FAILURE [None]
